FAERS Safety Report 23900407 (Version 1)
Quarter: 2024Q2

REPORT INFORMATION
  Report Type: Spontaneous
  Country: US (occurrence: None)
  Receive Date: 20240526
  Receipt Date: 20240526
  Transmission Date: 20240715
  Serious: No
  Sender: FDA-Public Use
  Company Number: US-ROCHE-3436398

PATIENT
  Age: 31 Year
  Sex: Male
  Weight: 59.02 kg

DRUGS (1)
  1. OCREVUS [Suspect]
     Active Substance: OCRELIZUMAB
     Indication: Multiple sclerosis
     Dosage: 300 MG/10 ML VIAL
     Route: 042
     Dates: start: 20231008

REACTIONS (2)
  - Product storage error [Unknown]
  - No adverse event [Unknown]
